FAERS Safety Report 8829906 (Version 2)
Quarter: 2013Q1

REPORT INFORMATION
  Report Type: Spontaneous
  Country: FR (occurrence: None)
  Receive Date: 20121004
  Receipt Date: 20121204
  Transmission Date: 20140127
  Serious: Yes (Life-Threatening, Hospitalization)
  Sender: FDA-Public Use
  Company Number: DSA_59950_2012

PATIENT
  Age: 33 Year
  Sex: Female

DRUGS (2)
  1. FLAGYL [Suspect]
     Indication: ENTEROCOLITIS INFECTIOUS
     Dosage: DF ORAL
     Route: 048
     Dates: start: 20120808, end: 20120814
  2. OFLOCET [Suspect]
     Indication: ENTEROCOLITIS INFECTIOUS
     Dosage: DF ORAL
     Route: 048
     Dates: start: 20120808, end: 20120814

REACTIONS (3)
  - Haemolytic uraemic syndrome [None]
  - Thrombocytopenia [None]
  - Hepatocellular injury [None]
